FAERS Safety Report 4624296-6 (Version None)
Quarter: 2005Q1

REPORT INFORMATION
  Report Type: 
  Country: None (occurrence: None)
  Receive Date: 20050331
  Receipt Date: 20050324
  Transmission Date: 20050727
  Serious: Yes (Death, Hospitalization)
  Sender: FDA-Public Use
  Company Number: US-ABBOTT-05P-163-0295072-00

PATIENT
  Sex: Female

DRUGS (2)
  1. SYNTHROID [Suspect]
     Indication: DRUG USE FOR UNKNOWN INDICATION
     Route: 048
  2. PANTOPRAZOLE SODIUM [Concomitant]
     Indication: GASTROOESOPHAGEAL REFLUX DISEASE
     Route: 048

REACTIONS (4)
  - GASTROINTESTINAL HAEMORRHAGE [None]
  - HIP FRACTURE [None]
  - HYPERSENSITIVITY [None]
  - RESPIRATORY FAILURE [None]
